FAERS Safety Report 7434829-2 (Version None)
Quarter: 2011Q2

REPORT INFORMATION
  Report Type: 
  Country: None (occurrence: None)
  Receive Date: 20110415
  Receipt Date: 20110330
  Transmission Date: 20111010
  Serious: Yes (Hospitalization)
  Sender: FDA-Public Use
  Company Number: AE-2009-304

PATIENT
  Age: 81 Year
  Sex: Female
  Weight: 70 kg

DRUGS (8)
  1. FUROSEMIDE [Suspect]
     Indication: CARDIAC FAILURE
     Dosage: 20 MG, BID, ORAL
     Route: 047
  2. HYDROCHLOROTHIAZIDE [Suspect]
     Indication: CARDIAC FAILURE
     Dosage: 25 MA. QD. ORAL
     Route: 048
  3. KALINOR [Concomitant]
  4. ASPIRIN [Concomitant]
  5. INTRAVENOUS FLUIDS [Concomitant]
  6. MOLSIDOMINE [Concomitant]
  7. NEBIVOLOL HCL [Suspect]
     Indication: HYPERTENSION
     Dosage: 2.5 MG, QD, ORAL
     Route: 048
  8. CANDESARTAN CILEXETIL [Suspect]
     Indication: HYPERTENSION
     Dosage: 16 MG, QD, ORAL
     Route: 048

REACTIONS (2)
  - HYPOTENSION [None]
  - HYPOKALAEMIA [None]
